FAERS Safety Report 7998358-X (Version None)
Quarter: 2011Q4

REPORT INFORMATION
  Report Type: 
  Country: None (occurrence: None)
  Receive Date: 20111221
  Receipt Date: 20110815
  Transmission Date: 20120403
  Serious: No
  Sender: FDA-Public Use
  Company Number: US-GLAXOSMITHKLINE-A0941099A

PATIENT
  Sex: Female

DRUGS (8)
  1. LOVAZA [Suspect]
     Indication: BLOOD TRIGLYCERIDES INCREASED
     Dosage: 1CAP TWICE PER DAY
     Route: 048
     Dates: start: 20100801
  2. AMPHETAMINES [Concomitant]
  3. METFORMIN HCL [Concomitant]
  4. FENOFIBRATE [Concomitant]
  5. ZOLPIDEM [Concomitant]
  6. CLONAZEPAM [Concomitant]
  7. TAMOXIFEN [Concomitant]
  8. LISINOPRIL [Concomitant]

REACTIONS (1)
  - THERAPEUTIC RESPONSE UNEXPECTED [None]
